FAERS Safety Report 7242958-1 (Version None)
Quarter: 2011Q1

REPORT INFORMATION
  Report Type: 
  Country: None (occurrence: None)
  Receive Date: 20110125
  Receipt Date: 20110118
  Transmission Date: 20110831
  Serious: Yes (Hospitalization)
  Sender: FDA-Public Use
  Company Number: JP-SANOFI-AVENTIS-2011SA000620

PATIENT
  Age: 74 Year
  Sex: Male
  Weight: 48.5 kg

DRUGS (3)
  1. TS-1 [Suspect]
     Indication: GASTRIC CANCER
     Route: 048
     Dates: start: 20101214, end: 20101221
  2. ELPLAT [Suspect]
     Indication: GASTRIC CANCER
     Route: 041
     Dates: start: 20101214, end: 20101214
  3. KETOPROFEN [Concomitant]
     Indication: ARTHRALGIA
     Dates: start: 20101207

REACTIONS (1)
  - GASTROINTESTINAL PERFORATION [None]
